FAERS Safety Report 17031182 (Version 8)
Quarter: 2022Q2

REPORT INFORMATION
  Report Type: Spontaneous
  Country: US (occurrence: US)
  Receive Date: 20191114
  Receipt Date: 20220503
  Transmission Date: 20220720
  Serious: No
  Sender: FDA-Public Use
  Company Number: US-PFIZER INC-2019486915

PATIENT
  Age: 35 Year
  Sex: Female
  Weight: 56.68 kg

DRUGS (2)
  1. TOVIAZ [Suspect]
     Active Substance: FESOTERODINE FUMARATE
     Indication: Pollakiuria
     Dosage: 10 MG, 1X/DAY (AT BEDTIME)
     Route: 048
  2. TOVIAZ [Suspect]
     Active Substance: FESOTERODINE FUMARATE
     Dosage: 8 MG, 1X/DAY AT BED TIME

REACTIONS (5)
  - Therapeutic product effect incomplete [Unknown]
  - Weight decreased [Recovered/Resolved]
  - Malaise [Unknown]
  - Product dose omission issue [Unknown]
  - Overdose [Not Recovered/Not Resolved]
